FAERS Safety Report 11157930 (Version 1)
Quarter: 2015Q2

REPORT INFORMATION
  Report Type: Spontaneous
  Country: JP (occurrence: None)
  Receive Date: 20150601
  Receipt Date: 20150601
  Transmission Date: 20150821
  Serious: Yes (Other)
  Sender: FDA-Public Use
  Company Number: JP-20150109

PATIENT
  Age: 35 Year
  Sex: Female

DRUGS (1)
  1. LIPIODOL ULTRA FLUID [Suspect]
     Active Substance: ETHIODIZED OIL
     Indication: HYSTEROSALPINGOGRAM

REACTIONS (6)
  - Contrast media reaction [None]
  - Medication residue present [None]
  - Caesarean section [None]
  - Pregnancy [None]
  - Placenta praevia haemorrhage [None]
  - Maternal exposure before pregnancy [None]
